FAERS Safety Report 5902601-8 (Version None)
Quarter: 2008Q3

REPORT INFORMATION
  Report Type: 
  Country: None (occurrence: None)
  Receive Date: 20080926
  Receipt Date: 20080915
  Transmission Date: 20090109
  Serious: Yes (Hospitalization, Other)
  Sender: FDA-Public Use
  Company Number: 2008SU0222

PATIENT
  Age: 66 Year
  Sex: Female

DRUGS (4)
  1. SULAR [Suspect]
     Indication: HYPERTENSION
     Dosage: 10 MG, BID, PO
     Route: 048
     Dates: start: 20000101
  2. HYDROCHLOROTHIAZIDE [Suspect]
     Indication: HYPERTENSION
  3. GLIPIZIDE [Concomitant]
  4. ZESTRIL [Concomitant]

REACTIONS (3)
  - CARDIAC MURMUR [None]
  - OVARIAN NEOPLASM [None]
  - PANCREATITIS [None]
